FAERS Safety Report 9656103 (Version 14)
Quarter: 2014Q1

REPORT INFORMATION
  Report Type: Spontaneous
  Country: GB (occurrence: GB)
  Receive Date: 20131030
  Receipt Date: 20140328
  Transmission Date: 20141002
  Serious: Yes (Other)
  Sender: FDA-Public Use
  Company Number: PHFR2013GB000717

PATIENT
  Age: 49 Year
  Sex: Male

DRUGS (5)
  1. CLOZARIL [Suspect]
     Indication: SCHIZOPHRENIA
     Dosage: 375 MG, QD, DAILY
     Route: 048
     Dates: start: 20040301
  2. CLOZARIL [Suspect]
     Dosage: UNK
     Route: 048
     Dates: start: 20130712
  3. CLOZARIL [Suspect]
     Dosage: 225 MG, DAILY
     Route: 048
  4. CARVEDILOL [Concomitant]
     Indication: HYPERTENSION
     Dosage: 12.5 MG, QD
     Route: 048
  5. CLOMIPRAMINE [Concomitant]
     Indication: DEPRESSION
     Dosage: 100 MG, QD
     Route: 048

REACTIONS (3)
  - Nasopharyngitis [Unknown]
  - Platelet count decreased [Not Recovered/Not Resolved]
  - White blood cell count decreased [Unknown]
